FAERS Safety Report 17946873 (Version 1)
Quarter: 2020Q2

REPORT INFORMATION
  Report Type: Spontaneous
  Country: US (occurrence: US)
  Receive Date: 20200624
  Receipt Date: 20200624
  Transmission Date: 20200714
  Serious: Yes (Other)
  Sender: FDA-Public Use
  Company Number: None

PATIENT
  Age: 47 Year
  Sex: Female
  Weight: 65.77 kg

DRUGS (10)
  1. DESICATED LIVER [Concomitant]
  2. LEVOTHYROXINE. [Concomitant]
     Active Substance: LEVOTHYROXINE
  3. MULTI VITAMIN [Concomitant]
     Active Substance: VITAMINS
  4. NP THYROID [Suspect]
     Active Substance: LEVOTHYROXINE\LIOTHYRONINE
     Indication: THYROID HORMONES DECREASED
     Dosage: ?          QUANTITY:1 DF DOSAGE FORM;?
     Route: 048
     Dates: start: 20190222, end: 201903
  5. LIOTHYRONINA [Concomitant]
  6. PROBIOTICS [Concomitant]
     Active Substance: PROBIOTICS NOS
  7. MK 7 [Concomitant]
  8. D-3 [Concomitant]
     Active Substance: CHOLECALCIFEROL
  9. OMEGA^S [Concomitant]
  10. VITAMIN C [Concomitant]
     Active Substance: ASCORBIC ACID

REACTIONS (4)
  - Dizziness [None]
  - Alopecia [None]
  - Feeling hot [None]
  - Palpitations [None]

NARRATIVE: CASE EVENT DATE: 201902
